FAERS Safety Report 4502807-9 (Version None)
Quarter: 2004Q4

REPORT INFORMATION
  Report Type: 
  Country: None (occurrence: None)
  Receive Date: 20041117
  Receipt Date: 20041105
  Transmission Date: 20050328
  Serious: Yes (Hospitalization)
  Sender: FDA-Public Use
  Company Number: JP-JNJFOC-20041004722

PATIENT
  Sex: Male
  Weight: 54 kg

DRUGS (9)
  1. REMICADE [Suspect]
     Route: 042
  2. REMICADE [Suspect]
     Route: 042
  3. REMICADE [Suspect]
     Route: 042
  4. REMICADE [Suspect]
     Indication: ANAL FISTULA
     Route: 042
  5. REMICADE [Suspect]
     Indication: CROHN'S DISEASE
     Route: 042
  6. PENTASA [Suspect]
     Indication: DRUG USE FOR UNKNOWN INDICATION
  7. LAC B [Concomitant]
  8. KENALOG [Concomitant]
     Route: 061
  9. MEDIEF [Concomitant]

REACTIONS (5)
  - ANAPHYLACTOID REACTION [None]
  - APHTHOUS STOMATITIS [None]
  - EXANTHEM [None]
  - INFUSION RELATED REACTION [None]
  - SHOCK [None]
